FAERS Safety Report 13651777 (Version 1)
Quarter: 2017Q2

REPORT INFORMATION
  Report Type: Spontaneous
  Country: FR (occurrence: FR)
  Receive Date: 20170614
  Receipt Date: 20170614
  Transmission Date: 20170830
  Serious: Yes (Other)
  Sender: FDA-Public Use
  Company Number: FR-PFIZER INC-2017252935

PATIENT
  Age: 58 Year
  Sex: Female

DRUGS (3)
  1. VECTIBIX [Suspect]
     Active Substance: PANITUMUMAB
     Indication: COLORECTAL CANCER METASTATIC
     Dosage: 420 MG, CYCLIC
     Route: 041
     Dates: start: 20170427
  2. OXALIPLATIN. [Suspect]
     Active Substance: OXALIPLATIN
     Indication: COLORECTAL CANCER METASTATIC
     Dosage: 155 MG, CYCLIC
     Route: 041
     Dates: start: 20170427, end: 20170511
  3. FLUOROURACILE ACCORD [Suspect]
     Active Substance: FLUOROURACIL
     Indication: COLORECTAL CANCER METASTATIC
     Dosage: 4350 MG + 700 MG, CYCLIC
     Route: 041
     Dates: start: 20170427

REACTIONS (8)
  - Nausea [Recovered/Resolved]
  - Constipation [Recovered/Resolved]
  - Back pain [Unknown]
  - Odynophagia [Unknown]
  - Erythema [Unknown]
  - Mucosal dryness [Recovered/Resolved]
  - Rash [Recovered/Resolved]
  - Condition aggravated [Unknown]

NARRATIVE: CASE EVENT DATE: 201704
